FAERS Safety Report 23973986 (Version 1)
Quarter: 2024Q2

REPORT INFORMATION
  Report Type: Spontaneous
  Country: CN (occurrence: CN)
  Receive Date: 20240613
  Receipt Date: 20240613
  Transmission Date: 20240716
  Serious: Yes (Hospitalization)
  Sender: FDA-Public Use
  Company Number: CN-NOVOPROD-1229092

PATIENT
  Age: 59 Year
  Sex: Female
  Weight: 87.5 kg

DRUGS (1)
  1. VICTOZA [Suspect]
     Active Substance: LIRAGLUTIDE
     Indication: Type 2 diabetes mellitus
     Dosage: 0.6 MG, QD
     Route: 058
     Dates: start: 202310, end: 202405

REACTIONS (3)
  - Thyroid cancer [Unknown]
  - Blood glucose increased [Unknown]
  - Weight decreased [Unknown]
